FAERS Safety Report 6928839-9 (Version None)
Quarter: 2010Q3

REPORT INFORMATION
  Report Type: 
  Country: None (occurrence: None)
  Receive Date: 20100817
  Receipt Date: 20100804
  Transmission Date: 20110219
  Serious: Yes (Other)
  Sender: FDA-Public Use
  Company Number: PHHY2010NL51408

PATIENT
  Sex: Male

DRUGS (1)
  1. ZOMETA [Suspect]
     Dosage: 4MG, UNK
     Route: 042
     Dates: start: 20100719, end: 20100804

REACTIONS (1)
  - GENERAL PHYSICAL HEALTH DETERIORATION [None]
